FAERS Safety Report 17683683 (Version 6)
Quarter: 2020Q3

REPORT INFORMATION
  Report Type: Report from Study
  Country: CN (occurrence: CN)
  Receive Date: 20200420
  Receipt Date: 20200924
  Transmission Date: 20201102
  Serious: Yes (Hospitalization, Other)
  Sender: FDA-Public Use
  Company Number: CN-BRISTOL-MYERS SQUIBB COMPANY-BMS-2020-031374

PATIENT
  Age: 63 Year
  Sex: Male

DRUGS (3)
  1. NIVOLUMAB [Suspect]
     Active Substance: NIVOLUMAB
     Dosage: 200 MILLIGRAM, Q2WK
     Route: 042
     Dates: start: 20200605, end: 202008
  2. NIVOLUMAB [Suspect]
     Active Substance: NIVOLUMAB
     Indication: NON-SMALL CELL LUNG CANCER
     Dosage: 200 MILLIGRAM, Q2WK
     Route: 042
     Dates: start: 201809, end: 20200106
  3. NIVOLUMAB [Suspect]
     Active Substance: NIVOLUMAB
     Dosage: 200 MILLIGRAM, Q2WK
     Route: 042
     Dates: start: 202002

REACTIONS (10)
  - Peripheral swelling [Unknown]
  - Liver function test increased [Unknown]
  - Blood sodium decreased [Unknown]
  - Amylase increased [Unknown]
  - Fall [Unknown]
  - Diarrhoea [Unknown]
  - Ligament sprain [Unknown]
  - Blood bilirubin increased [Recovering/Resolving]
  - Blood potassium decreased [Unknown]
  - Haemorrhoids [Unknown]

NARRATIVE: CASE EVENT DATE: 201809
